FAERS Safety Report 5871826-2 (Version None)
Quarter: 2008Q3

REPORT INFORMATION
  Report Type: 
  Country: None (occurrence: None)
  Receive Date: 20080905
  Receipt Date: 20080827
  Transmission Date: 20090109
  Serious: Yes (Hospitalization)
  Sender: FDA-Public Use
  Company Number: US-AMGEN-QUU301569

PATIENT
  Sex: Female
  Weight: 60.8 kg

DRUGS (3)
  1. NEULASTA [Suspect]
     Indication: CHEMOTHERAPY
     Route: 058
     Dates: start: 20080806, end: 20080806
  2. TAXOTERE [Concomitant]
     Dates: start: 20080805, end: 20080805
  3. CYTOXAN [Concomitant]
     Dates: start: 20080805, end: 20080805

REACTIONS (2)
  - HAEMATOCRIT DECREASED [None]
  - SPLENIC RUPTURE [None]
